FAERS Safety Report 17287541 (Version 3)
Quarter: 2020Q2

REPORT INFORMATION
  Report Type: Report from Study
  Country: None (occurrence: US)
  Receive Date: 20200120
  Receipt Date: 20200520
  Transmission Date: 20200713
  Serious: Yes (Hospitalization, Other)
  Sender: FDA-Public Use
  Company Number: US-ABBVIE-17K-163-3076005-00

PATIENT
  Sex: Male

DRUGS (10)
  1. IMBRUVICA [Suspect]
     Active Substance: IBRUTINIB
     Indication: LYMPHOCYTIC LEUKAEMIA
     Dosage: 140 MG, QD
     Route: 048
     Dates: start: 20180604, end: 20181218
  2. IMBRUVICA [Suspect]
     Active Substance: IBRUTINIB
     Dosage: 140 MG, QD
     Route: 048
     Dates: start: 20170107, end: 20180603
  3. IMBRUVICA [Suspect]
     Active Substance: IBRUTINIB
     Route: 048
     Dates: start: 20181219
  4. IMBRUVICA [Suspect]
     Active Substance: IBRUTINIB
     Indication: LYMPHOCYTIC LEUKAEMIA
     Dosage: 420 MG, QD
     Route: 048
     Dates: start: 20160511, end: 20160612
  5. IMBRUVICA [Suspect]
     Active Substance: IBRUTINIB
     Dosage: 280 MG, QD
     Route: 048
     Dates: start: 20170107
  6. IMBRUVICA [Suspect]
     Active Substance: IBRUTINIB
     Dosage: 420 MG, QD
     Route: 048
     Dates: start: 20160511, end: 20160612
  7. IMBRUVICA [Suspect]
     Active Substance: IBRUTINIB
     Indication: CHRONIC LYMPHOCYTIC LEUKAEMIA
     Dosage: 140 MG, QD
     Route: 048
     Dates: start: 20181121
  8. IMBRUVICA [Suspect]
     Active Substance: IBRUTINIB
     Dosage: 140 MG, QD
     Route: 048
     Dates: start: 20190308
  9. IMBRUVICA [Suspect]
     Active Substance: IBRUTINIB
     Route: 048
     Dates: start: 20160613, end: 20170106
  10. IMBRUVICA [Suspect]
     Active Substance: IBRUTINIB
     Route: 048
     Dates: start: 20160509

REACTIONS (3)
  - Ligament rupture [Unknown]
  - Gout [Not Recovered/Not Resolved]
  - Renal stone removal [Unknown]
